FAERS Safety Report 4585095-7 (Version None)
Quarter: 2005Q1

REPORT INFORMATION
  Report Type: 
  Country: None (occurrence: None)
  Receive Date: 20050217
  Receipt Date: 20041229
  Transmission Date: 20050727
  Serious: No
  Sender: FDA-Public Use
  Company Number: US-GLAXOSMITHKLINE-A0538810A

PATIENT
  Age: 51 Year
  Sex: Male

DRUGS (6)
  1. WELLBUTRIN [Suspect]
     Indication: DEPRESSION
     Dosage: 300MG PER DAY
     Route: 048
  2. LIPITOR [Concomitant]
  3. ACCUPRIL [Concomitant]
  4. HYDROCHLOROTHIAZIDE [Concomitant]
  5. PROPECIA [Concomitant]
  6. NORTRIPTYLINE HCL [Concomitant]

REACTIONS (1)
  - PALPITATIONS [None]
